FAERS Safety Report 5951799-4 (Version None)
Quarter: 2008Q4

REPORT INFORMATION
  Report Type: 
  Country: None (occurrence: None)
  Receive Date: 20081113
  Receipt Date: 20081107
  Transmission Date: 20090506
  Serious: Yes (Death, Hospitalization)
  Sender: FDA-Public Use
  Company Number: A0751250A

PATIENT
  Sex: Female

DRUGS (11)
  1. REQUIP [Suspect]
     Indication: PARKINSON'S DISEASE
     Dosage: 5MG THREE TIMES PER DAY
     Route: 048
  2. PAXIL CR [Suspect]
     Indication: DRUG USE FOR UNKNOWN INDICATION
     Route: 048
  3. MIDODRINE [Concomitant]
  4. SINEMET [Concomitant]
  5. REMERON [Concomitant]
  6. STALEVO 100 [Concomitant]
     Dosage: 100MG THREE TIMES PER DAY
  7. ASPIRIN [Concomitant]
     Route: 048
  8. BONIVA [Concomitant]
  9. UNKNOWN [Concomitant]
  10. VITAMINS [Concomitant]
  11. CALCIUM [Concomitant]

REACTIONS (6)
  - ANXIETY [None]
  - EXTREMITY CONTRACTURE [None]
  - FAILURE TO THRIVE [None]
  - HYPOTENSION [None]
  - PALLOR [None]
  - PARKINSON'S DISEASE [None]
